FAERS Safety Report 7640080-3 (Version None)
Quarter: 2011Q3

REPORT INFORMATION
  Report Type: 
  Country: None (occurrence: None)
  Receive Date: 20110727
  Receipt Date: 20110714
  Transmission Date: 20111222
  Serious: Yes (Hospitalization)
  Sender: FDA-Public Use
  Company Number: US-ELI_LILLY_AND_COMPANY-US201107005761

PATIENT
  Sex: Female

DRUGS (5)
  1. VERAPAMIL [Concomitant]
  2. FORTEO [Suspect]
     Dosage: 20 UG, WEEKLY (1/W)
     Dates: end: 20110501
  3. FORTEO [Suspect]
     Indication: OSTEOPOROSIS
     Dosage: 20 UG, QD
     Dates: start: 20110301
  4. METOPROLOL TARTRATE [Concomitant]
  5. FORTEO [Suspect]
     Dosage: 20 UG, QOD

REACTIONS (17)
  - BACK PAIN [None]
  - HEART RATE INCREASED [None]
  - DIARRHOEA [None]
  - INTERVERTEBRAL DISC SPACE NARROWING [None]
  - SPINAL DISORDER [None]
  - BLOOD COUNT ABNORMAL [None]
  - PARAESTHESIA [None]
  - NERVE INJURY [None]
  - INTERVERTEBRAL DISC DISORDER [None]
  - PRESYNCOPE [None]
  - DIZZINESS [None]
  - DRUG PRESCRIBING ERROR [None]
  - DYSPNOEA [None]
  - NAUSEA [None]
  - SURGERY [None]
  - HYPOAESTHESIA [None]
  - HEART RATE IRREGULAR [None]
